FAERS Safety Report 4318600-6 (Version None)
Quarter: 2004Q1

REPORT INFORMATION
  Report Type: 
  Country: None (occurrence: None)
  Receive Date: 20040316
  Receipt Date: 20040316
  Transmission Date: 20041129
  Serious: Yes (Hospitalization)
  Sender: FDA-Public Use
  Company Number: None

PATIENT
  Age: 92 Year
  Sex: Female
  Weight: 42.7 kg

DRUGS (11)
  1. TEQUIN [Suspect]
     Indication: PNEUMONIA
     Dosage: 400 MG IV Q 24 H
     Route: 042
     Dates: start: 20030113
  2. TEQUIN [Suspect]
     Indication: PNEUMONIA
     Dosage: 400 MG IV Q 24 H
     Route: 042
     Dates: start: 20030114
  3. ASPIRIN [Concomitant]
  4. LANOXIN [Concomitant]
  5. ATENOLOL [Concomitant]
  6. SEROQUEL [Concomitant]
  7. PRINIVIL [Concomitant]
  8. LASIX [Concomitant]
  9. ATIVAN [Concomitant]
  10. TYLENOL (CAPLET) [Concomitant]
  11. ROBNITUSSIN [Concomitant]

REACTIONS (1)
  - HYPOGLYCAEMIA [None]
